FAERS Safety Report 10548153 (Version 2)
Quarter: 2014Q4

REPORT INFORMATION
  Report Type: Spontaneous
  Country: JP (occurrence: JP)
  Receive Date: 20141028
  Receipt Date: 20141120
  Transmission Date: 20150529
  Serious: Yes (Hospitalization)
  Sender: FDA-Public Use
  Company Number: JP-PFIZER INC-2014294753

PATIENT
  Age: 73 Year
  Sex: Female
  Weight: 52 kg

DRUGS (10)
  1. AMOXICILLIN. [Suspect]
     Active Substance: AMOXICILLIN
     Indication: HELICOBACTER INFECTION
     Dosage: 0.5 DF, 2X/DAY
     Route: 048
     Dates: start: 20140512, end: 20140519
  2. GASMOTIN [Concomitant]
     Active Substance: MOSAPRIDE CITRATE
     Dosage: 5 MG (3 T/DAY)
     Dates: start: 20140408
  3. LANSOPRAZOLE. [Suspect]
     Active Substance: LANSOPRAZOLE
     Indication: HELICOBACTER INFECTION
     Dosage: 0.5 DF, 2X/DAY
     Route: 048
     Dates: start: 20140512, end: 20140519
  4. THYRADIN-S [Concomitant]
     Active Substance: LEVOTHYROXINE
     Dosage: 50 UG (15 T/DAY)
     Dates: start: 20140408
  5. MICAMLO [Concomitant]
     Active Substance: AMLODIPINE BESYLATE\TELMISARTAN
     Dosage: 1 T/DAY
     Dates: start: 20140408
  6. NEXIUM [Concomitant]
     Active Substance: ESOMEPRAZOLE MAGNESIUM
     Dosage: 20 MG (1 C/DAY)
     Dates: start: 20140408
  7. ITOROL [Concomitant]
     Active Substance: ISOSORBIDE MONONITRATE
     Dosage: 20 MG (2 T/DAY)
     Dates: start: 20140408
  8. METRONIDAZOLE. [Suspect]
     Active Substance: METRONIDAZOLE
     Indication: HELICOBACTER INFECTION
     Dosage: 0.5 DF, 2X/DAY
     Route: 048
     Dates: start: 20140512, end: 20140519
  9. MAG-LAX [Concomitant]
     Active Substance: MAGNESIUM HYDROXIDE\PARAFFIN
     Dosage: 330 MG (1 T/DAY) FOR 42 DAYS
     Dates: start: 20140408
  10. KETOPROFEN. [Concomitant]
     Active Substance: KETOPROFEN
     Dosage: 40 MG (1-2 TIME/DAY) 5 BAGS
     Dates: start: 20140408

REACTIONS (1)
  - Weight decreased [Not Recovered/Not Resolved]

NARRATIVE: CASE EVENT DATE: 20140520
